FAERS Safety Report 10467673 (Version 1)
Quarter: 2014Q3

REPORT INFORMATION
  Report Type: Spontaneous
  Country: US (occurrence: US)
  Receive Date: 20140922
  Receipt Date: 20140922
  Transmission Date: 20150326
  Serious: Yes (Other)
  Sender: FDA-Public Use
  Company Number: US-TEVA-509615USA

PATIENT
  Sex: Female

DRUGS (1)
  1. COPAXONE [Suspect]
     Active Substance: GLATIRAMER ACETATE
     Indication: MULTIPLE SCLEROSIS

REACTIONS (11)
  - Myelitis transverse [Recovered/Resolved]
  - Multiple sclerosis relapse [Unknown]
  - Depressed mood [Not Recovered/Not Resolved]
  - Mood altered [Unknown]
  - Depression [Not Recovered/Not Resolved]
  - Mobility decreased [Unknown]
  - Apathy [Not Recovered/Not Resolved]
  - Injection site atrophy [Unknown]
  - Central nervous system lesion [Unknown]
  - Psychotic disorder [Unknown]
  - Visual impairment [Unknown]

NARRATIVE: CASE EVENT DATE: 200909
